FAERS Safety Report 25660835 (Version 1)
Quarter: 2025Q3

REPORT INFORMATION
  Report Type: Spontaneous
  Country: US (occurrence: None)
  Receive Date: 20250807
  Receipt Date: 20250807
  Transmission Date: 20251021
  Serious: Yes (unspecified)
  Sender: FDA-CTU
  Company Number: None

PATIENT
  Age: 89 Year
  Sex: Female
  Weight: 53.07 kg

DRUGS (11)
  1. OXALIPLATIN [Suspect]
     Active Substance: OXALIPLATIN
     Indication: Colon cancer
     Dosage: FREQUENCY : EVERY THREE WEEKS;?
     Route: 042
     Dates: start: 20250617, end: 20250708
  2. FAMOTIDINE [Concomitant]
     Active Substance: FAMOTIDINE
  3. XELODA [Concomitant]
     Active Substance: CAPECITABINE
  4. XANAX [Concomitant]
     Active Substance: ALPRAZOLAM
  5. TRAZODONE [Concomitant]
     Active Substance: TRAZODONE HYDROCHLORIDE
  6. AMLODIPINE [Concomitant]
     Active Substance: AMLODIPINE BESYLATE
  7. LEVOTHYROXINE [Concomitant]
     Active Substance: LEVOTHYROXINE
  8. CETIRIZINE [Concomitant]
     Active Substance: CETIRIZINE HYDROCHLORIDE
  9. VITAMIN B COMPLEX [Concomitant]
     Active Substance: CYANOCOBALAMIN\DEXPANTHENOL\NIACINAMIDE\PYRIDOXINE HYDROCHLORIDE\RIBOFLAVIN 5^-PHOSPHATE SODIUM\THIA
  10. TYLENOL [Concomitant]
     Active Substance: ACETAMINOPHEN
  11. Artificial Tears [Concomitant]

REACTIONS (2)
  - Dyspnoea [None]
  - Dysphonia [None]

NARRATIVE: CASE EVENT DATE: 20250708
